FAERS Safety Report 17840095 (Version 1)
Quarter: 2020Q2

REPORT INFORMATION
  Report Type: Spontaneous
  Country: US (occurrence: US)
  Receive Date: 20200529
  Receipt Date: 20200529
  Transmission Date: 20200714
  Serious: No
  Sender: FDA-Public Use
  Company Number: None

PATIENT
  Age: 46 Year
  Sex: Male
  Weight: 62.1 kg

DRUGS (1)
  1. XIFAXAN [Suspect]
     Active Substance: RIFAXIMIN
     Indication: MEMORY IMPAIRMENT
     Dosage: ?          QUANTITY:60 TABLET(S);?
     Route: 048
     Dates: start: 20200521, end: 20200524

REACTIONS (5)
  - Morton^s neuralgia [None]
  - Hypoaesthesia [None]
  - Middle insomnia [None]
  - Peripheral swelling [None]
  - Therapy cessation [None]

NARRATIVE: CASE EVENT DATE: 20200521
